FAERS Safety Report 5191573-2 (Version None)
Quarter: 2006Q4

REPORT INFORMATION
  Report Type: 
  Country: None (occurrence: None)
  Receive Date: 20061220
  Receipt Date: 20061220
  Transmission Date: 20070319
  Serious: Yes (Life-Threatening, Hospitalization, Disabling)
  Sender: FDA-Public Use
  Company Number: None

PATIENT
  Age: 26 Year
  Sex: Female
  Weight: 63.5036 kg

DRUGS (1)
  1. TRI-SPRINTEC [Suspect]
     Indication: CONTRACEPTION
     Dosage: DAILY
     Dates: start: 20060220, end: 20061217

REACTIONS (12)
  - AGGRESSION [None]
  - ANXIETY [None]
  - CONCUSSION [None]
  - DEPRESSION [None]
  - IMPAIRED WORK ABILITY [None]
  - MOOD SWINGS [None]
  - POST-TRAUMATIC STRESS DISORDER [None]
  - PSYCHOTIC DISORDER [None]
  - ROAD TRAFFIC ACCIDENT [None]
  - SCRATCH [None]
  - STRESS [None]
  - SUICIDAL IDEATION [None]
